FAERS Safety Report 24383087 (Version 1)
Quarter: 2024Q4

REPORT INFORMATION
  Report Type: Spontaneous
  Country: FR (occurrence: FR)
  Receive Date: 20241001
  Receipt Date: 20241001
  Transmission Date: 20250114
  Serious: Yes (Other)
  Sender: AIRGAS
  Company Number: FR-AFSSAPS-GR2024001139

PATIENT
  Age: 3 Year
  Sex: Female
  Weight: 15 kg

DRUGS (2)
  1. OXYGEN [Suspect]
     Active Substance: OXYGEN
     Indication: Sedation
     Dates: start: 20240813, end: 20240813
  2. NITROUS OXIDE [Suspect]
     Active Substance: NITROUS OXIDE
     Dates: start: 20240813, end: 20240813

REACTIONS (3)
  - Salivary hypersecretion [Recovered/Resolved]
  - Vomiting [Recovered/Resolved]
  - Seizure [Recovered/Resolved]

NARRATIVE: CASE EVENT DATE: 20240813
